FAERS Safety Report 12189533 (Version 2)
Quarter: 2016Q2

REPORT INFORMATION
  Report Type: Report from Study
  Country: BE (occurrence: BE)
  Receive Date: 20160318
  Receipt Date: 20160525
  Transmission Date: 20160815
  Serious: Yes (Hospitalization, Other)
  Sender: FDA-Public Use
  Company Number: BE-BRISTOL-MYERS SQUIBB COMPANY-BMS-2016-018140

PATIENT
  Sex: Female

DRUGS (1)
  1. NIVOLUMAB [Suspect]
     Active Substance: NIVOLUMAB
     Indication: NON-SMALL CELL LUNG CANCER
     Dosage: 3 MG/KG, Q2WK
     Route: 042

REACTIONS (10)
  - Blood lactate dehydrogenase increased [Recovered/Resolved]
  - Microcytic anaemia [Unknown]
  - Pericardial effusion [Unknown]
  - Pericardial excision [Unknown]
  - Pericarditis [Unknown]
  - Malignant neoplasm progression [Unknown]
  - Pleural effusion [Unknown]
  - Gamma-glutamyltransferase increased [Recovered/Resolved]
  - Aspiration pleural cavity [Unknown]
  - Blood alkaline phosphatase increased [Recovered/Resolved]
